FAERS Safety Report 23137965 (Version 1)
Quarter: 2023Q4

REPORT INFORMATION
  Report Type: Spontaneous
  Country: IN (occurrence: IN)
  Receive Date: 20231102
  Receipt Date: 20231102
  Transmission Date: 20240110
  Serious: Yes (Death, Life-Threatening, Hospitalization, Other)
  Sender: FDA-Public Use
  Company Number: IN-MLMSERVICE-20231018-4613010-1

PATIENT
  Sex: Female

DRUGS (3)
  1. VANCOMYCIN [Suspect]
     Active Substance: VANCOMYCIN
     Indication: Antibiotic therapy
     Dosage: ADMINISTERED AS PER THE BODY WEIGHT AND GESTATIONAL AGE OF THE NEONATE.
  2. MEROPENEM [Suspect]
     Active Substance: MEROPENEM
     Indication: Antibiotic therapy
     Dosage: ADMINISTERED AS PER THE BODY WEIGHT AND GESTATIONAL AGE OF THE NEONATE.
  3. COLISTIN [Suspect]
     Active Substance: COLISTIN
     Indication: Antibiotic therapy
     Dosage: ADMINISTERED AS PER THE BODY WEIGHT AND GESTATIONAL AGE OF THE NEONATE.

REACTIONS (3)
  - Intraventricular haemorrhage neonatal [Fatal]
  - Rhinocerebral mucormycosis [Fatal]
  - Cerebral venous thrombosis [Fatal]
